FAERS Safety Report 14435722 (Version 1)
Quarter: 2018Q1

REPORT INFORMATION
  Report Type: Spontaneous
  Country: FR (occurrence: FR)
  Receive Date: 20180125
  Receipt Date: 20180125
  Transmission Date: 20180509
  Serious: Yes (Other)
  Sender: FDA-Public Use
  Company Number: FR-MERCK KGAA-2040772

PATIENT
  Age: 71 Year
  Sex: Female
  Weight: 47 kg

DRUGS (7)
  1. SERESTA [Concomitant]
     Active Substance: OXAZEPAM
  2. NEURONTIN [Concomitant]
     Active Substance: GABAPENTIN
  3. TAHOR [Concomitant]
     Active Substance: ATORVASTATIN CALCIUM
  4. BASDENE [Concomitant]
     Active Substance: BENZYLTHIOURACIL
  5. SELENIUM INJECTABLE [Concomitant]
  6. NOVOTHYROX [Suspect]
     Active Substance: LEVOTHYROXINE SODIUM
     Indication: BASEDOW^S DISEASE
     Route: 048
     Dates: start: 201707, end: 20170826
  7. THYROZOL [Suspect]
     Active Substance: METHIMAZOLE
     Route: 048
     Dates: start: 201705, end: 20170826

REACTIONS (4)
  - Peripheral coldness [Recovering/Resolving]
  - Paraesthesia [Not Recovered/Not Resolved]
  - Vertigo [Recovered/Resolved]
  - Muscle spasms [Recovered/Resolved]

NARRATIVE: CASE EVENT DATE: 201707
